FAERS Safety Report 12905013 (Version 3)
Quarter: 2017Q1

REPORT INFORMATION
  Report Type: Report from Study
  Country: IT (occurrence: IT)
  Receive Date: 20161102
  Receipt Date: 20170126
  Transmission Date: 20170428
  Serious: Yes (Other)
  Sender: FDA-Public Use
  Company Number: IT-GILEAD-2016-0240934

PATIENT
  Age: 62 Year
  Sex: Male

DRUGS (4)
  1. EMTRICITABINE/RILPIVIRINE/TENOFOVIR DF [Suspect]
     Active Substance: EMTRICITABINE\RILPIVIRINE\TENOFOVIR DISOPROXIL FUMARATE
     Indication: HIV INFECTION
     Route: 065
  2. CLASTEON [Concomitant]
  3. DIBASE [Concomitant]
     Active Substance: CHOLECALCIFEROL
  4. CARDIOASPIRINA [Concomitant]
     Active Substance: ASPIRIN

REACTIONS (1)
  - Osteoporosis [Unknown]

NARRATIVE: CASE EVENT DATE: 201609
